FAERS Safety Report 14819058 (Version 1)
Quarter: 2018Q2

REPORT INFORMATION
  Report Type: Spontaneous
  Country: CA (occurrence: CA)
  Receive Date: 20180427
  Receipt Date: 20180427
  Transmission Date: 20180711
  Serious: Yes (Death)
  Sender: FDA-Public Use
  Company Number: CA-TEVA-2018-CA-884397

PATIENT
  Age: 38 Year
  Sex: Female
  Weight: 162 kg

DRUGS (2)
  1. OXYCODONE [Suspect]
     Active Substance: OXYCODONE
     Route: 065
  2. COCAINE [Suspect]
     Active Substance: COCAINE
     Route: 065

REACTIONS (3)
  - Toxicity to various agents [Fatal]
  - Postmortem blood drug level increased [Fatal]
  - Toxicologic test abnormal [Fatal]
